FAERS Safety Report 18138764 (Version 1)
Quarter: 2020Q3

REPORT INFORMATION
  Report Type: Spontaneous
  Country: US (occurrence: US)
  Receive Date: 20200811
  Receipt Date: 20200811
  Transmission Date: 20201103
  Serious: Yes (Other)
  Sender: FDA-Public Use
  Company Number: None

PATIENT
  Age: 66 Year
  Sex: Female
  Weight: 72 kg

DRUGS (6)
  1. PRILOSEC [Concomitant]
     Active Substance: OMEPRAZOLE MAGNESIUM
  2. PREDNISONE. [Concomitant]
     Active Substance: PREDNISONE
  3. BRAFTOVI [Suspect]
     Active Substance: ENCORAFENIB
     Indication: MALIGNANT MELANOMA
     Route: 048
     Dates: start: 20180706
  4. IBUPROFEN. [Concomitant]
     Active Substance: IBUPROFEN
  5. MEKTOVI [Suspect]
     Active Substance: BINIMETINIB
     Indication: MALIGNANT MELANOMA
     Route: 048
     Dates: start: 20180706
  6. VITAMIN D3 [Concomitant]
     Active Substance: CHOLECALCIFEROL

REACTIONS (1)
  - Herpes zoster [None]

NARRATIVE: CASE EVENT DATE: 20200811
